FAERS Safety Report 9970168 (Version 1)
Quarter: 2014Q1

REPORT INFORMATION
  Report Type: Spontaneous
  Country: US (occurrence: None)
  Receive Date: 20140218
  Receipt Date: 20140218
  Transmission Date: 20141002
  Serious: Yes (Other)
  Sender: FDA-Public Use
  Company Number: OMPQ-PR-1309S-1090

PATIENT
  Age: 23 Year
  Sex: Male
  Weight: 83.46 kg

DRUGS (3)
  1. OMNIPAQUE [Suspect]
     Indication: ABDOMINAL PAIN LOWER
     Dosage: 100 ML, SINGLE DOSE, INTRAVENOUS
     Route: 042
     Dates: start: 20130903, end: 20130903
  2. OMNIPAQUE [Suspect]
     Indication: DIAGNOSTIC PROCEDURE
     Dosage: 100 ML, SINGLE DOSE, INTRAVENOUS
     Route: 042
     Dates: start: 20130903, end: 20130903
  3. SUBOXONE (TEMGESIC-NX) [Concomitant]

REACTIONS (4)
  - Pruritus [None]
  - Urticaria [None]
  - Chills [None]
  - Dyspnoea [None]
